FAERS Safety Report 24000879 (Version 1)
Quarter: 2024Q2

REPORT INFORMATION
  Report Type: Spontaneous
  Country: CH (occurrence: None)
  Receive Date: 20240621
  Receipt Date: 20240621
  Transmission Date: 20240716
  Serious: Yes (Hospitalization)
  Sender: FDA-Public Use
  Company Number: 2024A142701

PATIENT
  Age: 56 Year
  Sex: Male
  Weight: 87.2 kg

DRUGS (16)
  1. QUETIAPINE [Suspect]
     Active Substance: QUETIAPINE
     Indication: Schizophrenia
     Dosage: 25 MG, PRN MAX. 2X/24H ; AS NECESSARY. QUETIAPINE 25 MG, ORALLY, TWICE A DAY AS NEEDED
     Route: 048
  2. QUETIAPINE [Suspect]
     Active Substance: QUETIAPINE
     Indication: Schizophrenia
     Dosage: 50 MG, PRN MAX. 2X/24H ; AS NECESSARY
     Route: 048
  3. QUETIAPINE [Suspect]
     Active Substance: QUETIAPINE
     Indication: Schizophrenia
     Dosage: 25 MG, ORALLY, TWICE A DAY AS NEEDED
     Route: 048
     Dates: start: 20240301
  4. OLANZAPINE [Suspect]
     Active Substance: OLANZAPINE
     Indication: Schizophrenia
     Dosage: 10 MG, 0-0.5-1-0
     Dates: start: 20240301
  5. OLANZAPINE [Suspect]
     Active Substance: OLANZAPINE
     Indication: Schizophrenia
     Dosage: 10 MG, DAILY (1-0-0-0)
     Route: 048
     Dates: start: 20240301
  6. OLANZAPINE [Suspect]
     Active Substance: OLANZAPINE
     Indication: Schizophrenia
     Dosage: 10 MG, 1-0-0-0
     Dates: start: 20240301
  7. ABILIFY [Suspect]
     Active Substance: ARIPIPRAZOLE
     Indication: Schizophrenia
     Dosage: 20 MG, DAILY 10 MG ARIPIPRAZOL PER TABLET 2-0-0-0
     Dates: start: 20240501
  8. ABILIFY [Suspect]
     Active Substance: ARIPIPRAZOLE
     Indication: Schizophrenia
     Dosage: 20 MG, DAILY 10 MG ARIPIPRAZOL PER TABLET 2-0-0-0
     Dates: start: 20240301
  9. VALIUM [Suspect]
     Active Substance: DIAZEPAM
     Indication: Schizophrenia
     Dosage: 5 MG, 1-0-1-0
     Dates: start: 20240301
  10. VALIUM [Suspect]
     Active Substance: DIAZEPAM
     Indication: Schizophrenia
     Dosage: 15 MG, 5 MG PER TABLET
  11. VALIUM [Suspect]
     Active Substance: DIAZEPAM
     Indication: Schizophrenia
     Dosage: MG, MAX. 2X/24H ; AS NECESSARY
  12. HALDOL [Suspect]
     Active Substance: HALOPERIDOL
     Indication: Schizophrenia
     Dosage: 5 MG, MAX. 2X/24H ; AS NECESSARY
  13. VALPROATE SODIUM [Concomitant]
     Active Substance: VALPROATE SODIUM
     Indication: Schizophrenia
     Dosage: 600 MG, UNK
  14. INVEGA [Concomitant]
     Active Substance: PALIPERIDONE
     Indication: Schizophrenia
     Dosage: 6 MG, UNK
  15. INVEGA [Concomitant]
     Active Substance: PALIPERIDONE
     Indication: Schizophrenia
     Dosage: 3 MG, UNK
  16. INVEGA [Concomitant]
     Active Substance: PALIPERIDONE
     Indication: Schizophrenia
     Dosage: 9 MG, UNK

REACTIONS (8)
  - Psychomotor retardation [Recovering/Resolving]
  - Gait disturbance [Recovering/Resolving]
  - Dysphagia [Recovering/Resolving]
  - Dysarthria [Recovering/Resolving]
  - Salivary hypersecretion [Recovering/Resolving]
  - Pneumonia aspiration [Recovering/Resolving]
  - Scrotal erythema [Unknown]
  - Polydipsia [Unknown]

NARRATIVE: CASE EVENT DATE: 20240401
